FAERS Safety Report 4384774-4 (Version None)
Quarter: 2004Q2

REPORT INFORMATION
  Report Type: 
  Country: None (occurrence: None)
  Receive Date: 20040625
  Receipt Date: 20040506
  Transmission Date: 20050107
  Serious: Yes (Hospitalization, Other)
  Sender: FDA-Public Use
  Company Number: CA-AMGEN-US075543

PATIENT
  Sex: Male
  Weight: 75 kg

DRUGS (13)
  1. ARANESP [Suspect]
     Indication: DIALYSIS
     Route: 042
     Dates: start: 20030506
  2. AZATHIOPRINE [Suspect]
  3. MYCOPHENOLATE MOFETIL [Suspect]
  4. FERROUS SULFATE TAB [Concomitant]
  5. PREDNISONE [Concomitant]
  6. AMLODIPINE [Concomitant]
  7. RANITIDINE [Concomitant]
  8. OMEPRAZOLE [Concomitant]
  9. DOMPERIDONE [Concomitant]
  10. CALCIUM CARBONATE [Concomitant]
  11. MEVACOR [Concomitant]
  12. NADOLOL [Concomitant]
  13. RENAGEL [Concomitant]

REACTIONS (5)
  - GASTROINTESTINAL HAEMORRHAGE [None]
  - HAEMOGLOBIN DECREASED [None]
  - PAIN [None]
  - THERAPEUTIC RESPONSE DECREASED [None]
  - WHITE BLOOD CELL COUNT INCREASED [None]
